FAERS Safety Report 8969944 (Version 1)
Quarter: 2012Q4

REPORT INFORMATION
  Report Type: 
  Country: US (occurrence: US)
  Receive Date: 20121218
  Receipt Date: 20121218
  Transmission Date: 20130627
  Serious: Yes (Other)
  Sender: FDA-Public Use
  Company Number: US-BRISTOL-MYERS SQUIBB COMPANY-16229924

PATIENT
  Sex: Female

DRUGS (3)
  1. ABILIFY [Suspect]
     Dosage: 2.5mg
  2. PROZAC [Concomitant]
  3. ADDERALL [Concomitant]

REACTIONS (2)
  - Extrapyramidal disorder [Unknown]
  - Dysphagia [Unknown]
